FAERS Safety Report 5281145-3 (Version None)
Quarter: 2007Q1

REPORT INFORMATION
  Report Type: 
  Country: None (occurrence: None)
  Receive Date: 20070323
  Receipt Date: 20070309
  Transmission Date: 20070707
  Serious: Yes (Death, Hospitalization)
  Sender: FDA-Public Use
  Company Number: 2007P1000106

PATIENT
  Age: 59 Year
  Sex: Male

DRUGS (2)
  1. BUSULFAN (BUSULFAN) [Suspect]
     Indication: STEM CELL TRANSPLANT
     Dosage: IV
     Route: 042
  2. CYCLOPHOSPHAMIDE [Concomitant]

REACTIONS (9)
  - AZOTAEMIA [None]
  - CARDIAC FAILURE [None]
  - DISSEMINATED INTRAVASCULAR COAGULATION [None]
  - INFECTION [None]
  - MULTI-ORGAN FAILURE [None]
  - OEDEMA MOUTH [None]
  - PYREXIA [None]
  - RENAL FAILURE [None]
  - STOMATITIS [None]
